FAERS Safety Report 4877338-7 (Version None)
Quarter: 2006Q1

REPORT INFORMATION
  Report Type: 
  Country: None (occurrence: None)
  Receive Date: 20060109
  Receipt Date: 20051227
  Transmission Date: 20060701
  Serious: Yes (Hospitalization)
  Sender: FDA-Public Use
  Company Number: 2005-BP-21840RO

PATIENT
  Age: 83 Year
  Sex: Female

DRUGS (7)
  1. METHOTREXATE [Suspect]
     Dosage: 7.5 MG PER WEEK, SC
     Route: 058
  2. PAMIDRONATE DISODIUM [Suspect]
  3. ATENOLOL [Concomitant]
  4. CO-AMILOFRUSE (FRUMIL) [Concomitant]
  5. DOXAZOSIN (DOXAZOSIN) [Concomitant]
  6. FOLIC ACID [Concomitant]
  7. AMLODIPINE [Concomitant]

REACTIONS (3)
  - EPISTAXIS [None]
  - MUCOSAL INFLAMMATION [None]
  - PANCYTOPENIA [None]
